FAERS Safety Report 4364636-9 (Version None)
Quarter: 2004Q2

REPORT INFORMATION
  Report Type: 
  Country: None (occurrence: None)
  Receive Date: 20040521
  Receipt Date: 20040510
  Transmission Date: 20050107
  Serious: Yes (Other)
  Sender: FDA-Public Use
  Company Number: HQWYES10811MAY04

PATIENT
  Age: 18 Year
  Sex: Male

DRUGS (1)
  1. EFFEXOR [Suspect]
     Indication: DEPRESSION
     Dosage: ORAL
     Route: 048

REACTIONS (7)
  - FEELING OF DESPAIR [None]
  - HOMICIDAL IDEATION [None]
  - INSOMNIA [None]
  - JEALOUS DELUSION [None]
  - JUDGEMENT IMPAIRED [None]
  - MURDER [None]
  - SUICIDAL IDEATION [None]
